FAERS Safety Report 9002077 (Version 2)
Quarter: 2013Q1

REPORT INFORMATION
  Report Type: Report from Study
  Country: CA (occurrence: CA)
  Receive Date: 20130107
  Receipt Date: 20130109
  Transmission Date: 20140127
  Serious: Yes (Death)
  Sender: FDA-Public Use
  Company Number: CA-ROCHE-1128991

PATIENT
  Sex: Female

DRUGS (12)
  1. VEMURAFENIB [Suspect]
     Indication: METASTATIC MALIGNANT MELANOMA
     Route: 048
     Dates: start: 20120628, end: 20120831
  2. VEMURAFENIB [Suspect]
     Route: 065
     Dates: start: 20120831, end: 201211
  3. LANSOPRAZOLE [Concomitant]
  4. HALDOL [Concomitant]
  5. ONDANSETRON [Concomitant]
  6. DECADRON [Concomitant]
  7. ENOXAPARIN [Concomitant]
  8. MILK OF MAGNESIA [Concomitant]
  9. LORAZEPAM [Concomitant]
  10. TYLENOL [Concomitant]
  11. LACTULOSE [Concomitant]
  12. SENOKOT [Concomitant]

REACTIONS (2)
  - Disease progression [Fatal]
  - Fatigue [Unknown]
